FAERS Safety Report 5044211-3 (Version None)
Quarter: 2006Q3

REPORT INFORMATION
  Report Type: 
  Country: None (occurrence: None)
  Receive Date: 20060706
  Receipt Date: 20060626
  Transmission Date: 20061208
  Serious: Yes (Other)
  Sender: FDA-Public Use
  Company Number: AU-ROCHE-453075

PATIENT
  Sex: Female

DRUGS (1)
  1. VALIUM [Suspect]
     Indication: ANXIETY
     Route: 065

REACTIONS (1)
  - ROAD TRAFFIC ACCIDENT [None]
